FAERS Safety Report 4624173-0 (Version None)
Quarter: 2005Q1

REPORT INFORMATION
  Report Type: 
  Country: None (occurrence: None)
  Receive Date: 20050331
  Receipt Date: 20050318
  Transmission Date: 20050727
  Serious: Yes (Hospitalization)
  Sender: FDA-Public Use
  Company Number: JP-GLAXOSMITHKLINE-B0375441A

PATIENT
  Age: 53 Year
  Sex: Male

DRUGS (22)
  1. EPIVIR [Suspect]
     Indication: ACQUIRED IMMUNODEFICIENCY SYNDROME
     Dosage: 150MG TWICE PER DAY
     Route: 048
     Dates: start: 20030822
  2. ZERIT [Suspect]
     Indication: ACQUIRED IMMUNODEFICIENCY SYNDROME
     Route: 048
     Dates: start: 20030822
  3. STOCRIN [Suspect]
     Indication: ACQUIRED IMMUNODEFICIENCY SYNDROME
     Route: 048
     Dates: start: 20030822
  4. BAKTAR [Suspect]
     Indication: INFECTION PROPHYLAXIS
     Dosage: 1TAB PER DAY
     Route: 048
     Dates: start: 20030822
  5. UNSPECIFIED MEDICATION [Concomitant]
     Indication: CYTOMEGALOVIRUS INFECTION
     Dosage: 250MGK TWICE PER DAY
     Route: 042
     Dates: start: 20030911, end: 20030930
  6. CLARITHROMYCIN [Concomitant]
     Indication: MYCOBACTERIUM AVIUM COMPLEX INFECTION
     Dosage: 500MG TWICE PER DAY
     Route: 048
     Dates: start: 20030926, end: 20030930
  7. AMOBAN [Concomitant]
     Indication: INSOMNIA
     Dosage: 7.5MG PER DAY
     Route: 048
     Dates: start: 20030822, end: 20031004
  8. VEEN-D [Concomitant]
     Indication: FLUID REPLACEMENT
     Dosage: 500ML PER DAY
     Route: 042
     Dates: start: 20030826, end: 20030907
  9. SOLDEM 3A [Concomitant]
     Indication: FLUID REPLACEMENT
     Dosage: 500ML PER DAY
     Route: 042
     Dates: start: 20030828, end: 20030902
  10. AMINOFLUID [Concomitant]
     Indication: FLUID REPLACEMENT
     Dosage: 500ML PER DAY
     Route: 042
     Dates: start: 20030830, end: 20030906
  11. UNSPECIFIED MEDICATION [Concomitant]
     Indication: INFECTION PROPHYLAXIS
     Dosage: 1.5G TWICE PER DAY
     Route: 042
     Dates: start: 20030826, end: 20030908
  12. TAKEPRON [Concomitant]
     Indication: GASTRITIS
     Dosage: 15MG PER DAY
     Route: 048
     Dates: start: 20030827, end: 20030925
  13. VALTREX [Concomitant]
     Indication: HERPES SIMPLEX
     Dosage: 500MG TWICE PER DAY
     Route: 048
     Dates: start: 20030827, end: 20031004
  14. MAGNESIUM OXIDE [Concomitant]
     Indication: CONSTIPATION PROPHYLAXIS
     Dosage: .5G THREE TIMES PER DAY
     Route: 048
     Dates: start: 20030822, end: 20031004
  15. PURSENNID [Concomitant]
     Indication: CONSTIPATION PROPHYLAXIS
     Dosage: 24MG PER DAY
     Route: 048
     Dates: start: 20030822, end: 20031004
  16. DIFLUCAN [Concomitant]
     Indication: ORAL CANDIDIASIS
     Dosage: 200MG PER DAY
     Route: 048
     Dates: start: 20030906, end: 20031004
  17. AMIKACIN SULFATE [Concomitant]
     Indication: MYCOBACTERIUM AVIUM COMPLEX INFECTION
     Dosage: 400MG TWICE PER DAY
     Dates: start: 20030926, end: 20030930
  18. VOLTAREN [Concomitant]
     Indication: ANTIPYRESIS
     Route: 065
     Dates: start: 20030822, end: 20031001
  19. EBUTOL [Concomitant]
     Indication: MYCOBACTERIUM AVIUM COMPLEX INFECTION
     Dosage: 1375MG PER DAY
     Route: 048
     Dates: start: 20030926, end: 20031004
  20. RIMACTANE [Concomitant]
     Indication: MYCOBACTERIUM AVIUM COMPLEX INFECTION
     Dosage: 150MG PER DAY
     Route: 048
     Dates: start: 20030926, end: 20031004
  21. CIPROXAN [Concomitant]
     Indication: MYCOBACTERIUM AVIUM COMPLEX INFECTION
     Dosage: 400MG THREE TIMES PER DAY
     Route: 065
     Dates: start: 20031001, end: 20031004
  22. ZITHROMAC [Concomitant]
     Indication: MYCOBACTERIUM AVIUM COMPLEX INFECTION
     Dates: start: 20031001, end: 20031004

REACTIONS (5)
  - HAEMODIALYSIS [None]
  - NEUTROPHIL COUNT DECREASED [None]
  - PANCYTOPENIA [None]
  - RENAL FAILURE ACUTE [None]
  - WHITE BLOOD CELL COUNT INCREASED [None]
